FAERS Safety Report 6488825-2 (Version None)
Quarter: 2009Q4

REPORT INFORMATION
  Report Type: 
  Country: None (occurrence: None)
  Receive Date: 20091210
  Receipt Date: 20091203
  Transmission Date: 20100525
  Serious: Yes (Other)
  Sender: FDA-Public Use
  Company Number: BR-PFIZER INC-2009274862

PATIENT
  Age: 79 Year
  Sex: Female

DRUGS (13)
  1. FIBRASE [Suspect]
     Indication: VARICOSE ULCERATION
     Dosage: UNK
     Route: 061
     Dates: start: 19890101
  2. FIBRASE [Suspect]
     Dosage: UNK
     Route: 061
  3. TERRAMYCIN V CAP [Suspect]
     Indication: SKIN ULCER
     Dosage: UNK
     Route: 061
  4. TROFODERMIN [Suspect]
     Indication: SKIN ULCER
     Route: 061
  5. IRUXOL [Suspect]
     Indication: SKIN ULCER
     Route: 061
  6. ASCORBIC ACID [Concomitant]
     Dosage: UNK
     Dates: start: 20070101
  7. DAFLON [Concomitant]
     Dosage: 500 MG, UNK
  8. IRON [Concomitant]
     Dosage: UNK
     Dates: start: 20070101
  9. VITAMIN A [Concomitant]
     Dosage: UNK, 1X/DAY
     Dates: start: 20081201
  10. VITAMIN B COMPLEX CAP [Concomitant]
  11. ZINC [Concomitant]
  12. CALCIUM [Concomitant]
  13. MAGNESIUM [Concomitant]

REACTIONS (7)
  - DRUG INTOLERANCE [None]
  - FEMORAL NECK FRACTURE [None]
  - HYPERSENSITIVITY [None]
  - IMPAIRED HEALING [None]
  - OPEN WOUND [None]
  - PAIN [None]
  - SKIN ULCER [None]
